FAERS Safety Report 6054944-8 (Version None)
Quarter: 2009Q1

REPORT INFORMATION
  Report Type: 
  Country: None (occurrence: None)
  Receive Date: 20090128
  Receipt Date: 20090126
  Transmission Date: 20090719
  Serious: Yes (Death, Other)
  Sender: FDA-Public Use
  Company Number: PHEH2009US00724

PATIENT
  Sex: Male

DRUGS (1)
  1. GLEEVEC [Suspect]
     Dosage: 400 MG, QD
     Route: 048
     Dates: end: 20081001

REACTIONS (5)
  - AMPUTATION [None]
  - COLLAPSE OF LUNG [None]
  - DEATH [None]
  - LUNG DISORDER [None]
  - METASTATIC NEOPLASM [None]
